FAERS Safety Report 4640105-3 (Version None)
Quarter: 2005Q2

REPORT INFORMATION
  Report Type: 
  Country: None (occurrence: None)
  Receive Date: 20050420
  Receipt Date: 20050406
  Transmission Date: 20051028
  Serious: Yes (Other)
  Sender: FDA-Public Use
  Company Number: US-GLAXOSMITHKLINE-A0553011A

PATIENT
  Age: 71 Year
  Sex: Female

DRUGS (4)
  1. BEXXAR [Suspect]
     Route: 042
     Dates: start: 20050304
  2. TPN [Concomitant]
     Dates: start: 20050321
  3. METOCLOPRAMIDE [Concomitant]
  4. REMERON [Concomitant]

REACTIONS (1)
  - HYPERBILIRUBINAEMIA [None]
